FAERS Safety Report 9238693 (Version 1)
Quarter: 2013Q1

REPORT INFORMATION
  Report Type: Spontaneous
  Country: US (occurrence: None)
  Receive Date: 20121113
  Receipt Date: 20121113
  Transmission Date: 20140127
  Serious: No
  Sender: FDA-Public Use
  Company Number: PHEH2012US018943

PATIENT
  Age: 70 Year
  Sex: Female

DRUGS (1)
  1. ARCAPTA [Suspect]
     Dates: start: 20120927

REACTIONS (1)
  - Throat irritation [None]
